FAERS Safety Report 17680672 (Version 1)
Quarter: 2020Q2

REPORT INFORMATION
  Report Type: Report from Study
  Country: ES (occurrence: ES)
  Receive Date: 20200417
  Receipt Date: 20200417
  Transmission Date: 20200714
  Serious: Yes (Hospitalization)
  Sender: FDA-Public Use
  Company Number: ES-TEVA-2020-ES-1224379

PATIENT
  Age: 58 Year
  Sex: Female

DRUGS (6)
  1. SIMVASTATINA (1023A) [Interacting]
     Active Substance: SIMVASTATIN
     Indication: DYSLIPIDAEMIA
     Dosage: 20MG
     Route: 048
     Dates: start: 20091203
  2. MASDIL RETARD 120 MG COMPRIMIDOS DE LIBERACION PROLONGADA , 60 COMPRIM [Concomitant]
     Indication: HYPERTENSION
     Dosage: 120MG
     Route: 048
     Dates: start: 20090709, end: 20170908
  3. OMEPRAZOL (2141A) [Concomitant]
     Active Substance: OMEPRAZOLE
     Indication: PROPHYLAXIS
     Dosage: 20MG
     Route: 048
     Dates: start: 20110324
  4. PREDNISONA (886A) [Suspect]
     Active Substance: PREDNISONE
     Indication: SYSTEMIC LUPUS ERYTHEMATOSUS
     Dosage: 15MG
     Route: 048
     Dates: start: 20090709
  5. ENALAPRIL MALEATO (2142MA) [Concomitant]
     Active Substance: ENALAPRIL MALEATE
     Indication: HYPERTENSION
     Dosage: 5MG
     Route: 048
     Dates: start: 20090709, end: 20170908
  6. WARFARINA SODICA (3221SO) [Interacting]
     Active Substance: WARFARIN SODIUM
     Indication: DEEP VEIN THROMBOSIS
     Route: 048
     Dates: start: 20131030, end: 20170810

REACTIONS (2)
  - Traumatic haematoma [Recovered/Resolved]
  - Drug interaction [Unknown]

NARRATIVE: CASE EVENT DATE: 20170810
